FAERS Safety Report 23854335 (Version 1)
Quarter: 2024Q2

REPORT INFORMATION
  Report Type: Spontaneous
  Country: ES (occurrence: ES)
  Receive Date: 20240514
  Receipt Date: 20240514
  Transmission Date: 20240716
  Serious: Yes (Other)
  Sender: FDA-Public Use
  Company Number: ES-BAYER-2024A067991

PATIENT
  Sex: Male

DRUGS (2)
  1. DAROLUTAMIDE [Suspect]
     Active Substance: DAROLUTAMIDE
     Dosage: UNK
  2. DOCETAXEL [Concomitant]
     Active Substance: DOCETAXEL\DOCETAXEL ANHYDROUS
     Dosage: UNK

REACTIONS (1)
  - Malignant neoplasm progression [None]
